FAERS Safety Report 25263077 (Version 1)
Quarter: 2025Q2

REPORT INFORMATION
  Report Type: Spontaneous
  Country: JP (occurrence: JP)
  Receive Date: 20250502
  Receipt Date: 20250502
  Transmission Date: 20250717
  Serious: Yes (Other)
  Sender: GUERBET
  Company Number: JP-GUERBETG_JAPAN-JP-20250068

PATIENT
  Age: 54 Year
  Sex: Male

DRUGS (3)
  1. OPTIRAY 350 [Suspect]
     Active Substance: IOVERSOL
     Indication: Computerised tomogram abdomen
     Route: 042
     Dates: start: 20250405, end: 20250405
  2. Tranexamic acid 250mg [Concomitant]
     Indication: Haemorrhagic diathesis
     Route: 048
  3. Fexofenadine hydrochloride 60mg [Concomitant]
     Indication: Hypersensitivity
     Route: 048

REACTIONS (2)
  - Rash papular [Recovered/Resolved]
  - Feeling abnormal [Recovered/Resolved]

NARRATIVE: CASE EVENT DATE: 20250405
